FAERS Safety Report 10063645 (Version 3)
Quarter: 2014Q2

REPORT INFORMATION
  Report Type: Spontaneous
  Country: US (occurrence: US)
  Receive Date: 20140407
  Receipt Date: 20140507
  Transmission Date: 20141212
  Serious: Yes (Other)
  Sender: FDA-Public Use
  Company Number: US-RB-065460-14

PATIENT
  Age: 61 Year
  Sex: Female

DRUGS (1)
  1. MUCINEX FAST MAX SEVERE COLD,FLU,THROAT LIQUID [Suspect]
     Indication: PRODUCT USED FOR UNKNOWN INDICATION
     Dosage: FILLED THE CUP UP TO THE TOP AND TOOK 2 DIFFERENT DOSES, 1 IN THE MORNING AND 1 AT NIGHT.
     Route: 048
     Dates: start: 20140423

REACTIONS (3)
  - Lung disorder [Recovered/Resolved]
  - Dyspnoea [Recovered/Resolved]
  - Adverse drug reaction [Recovered/Resolved]
